FAERS Safety Report 9373601 (Version 2)
Quarter: 2013Q3

REPORT INFORMATION
  Report Type: Spontaneous
  Country: JP (occurrence: JP)
  Receive Date: 20130627
  Receipt Date: 20130703
  Transmission Date: 20140515
  Serious: Yes (Death, Other)
  Sender: FDA-Public Use
  Company Number: PHHY2013JP065155

PATIENT
  Age: 66 Year
  Sex: Male
  Weight: 53.9 kg

DRUGS (6)
  1. ETOPOSIDE SANDOZ [Suspect]
     Indication: SMALL CELL LUNG CANCER
     Dosage: 60 MG/M2, UNK
  2. CARBOPLATIN [Suspect]
     Indication: SMALL CELL LUNG CANCER
     Dosage: UNK UKN, UNK
  3. HYDROCORTISONE [Concomitant]
     Indication: HYPOPITUITARISM
     Dosage: 200 MG/DAY
     Route: 041
  4. HYDROCORTISONE [Concomitant]
     Dosage: 30 MG/DAY
     Route: 048
  5. LEVOTHYROXINE SODIUM [Concomitant]
     Dosage: 50 UG/DAY
     Route: 048
  6. AMRUBICIN [Concomitant]
     Dosage: 35 MG/M2, UNK

REACTIONS (4)
  - Condition aggravated [Fatal]
  - Metastases to lymph nodes [Fatal]
  - Neoplasm progression [Fatal]
  - Neutrophil count decreased [Unknown]
